FAERS Safety Report 6001004-8 (Version None)
Quarter: 2008Q4

REPORT INFORMATION
  Report Type: 
  Country: None (occurrence: None)
  Receive Date: 20081215
  Receipt Date: 20080723
  Transmission Date: 20090506
  Serious: No
  Sender: FDA-Public Use
  Company Number: US-BRISTOL-MYERS SQUIBB COMPANY-14274963

PATIENT
  Age: 39 Year
  Sex: Female

DRUGS (1)
  1. QUESTRAN [Suspect]
     Indication: DIARRHOEA
     Dosage: SWITCHED TO CHOLESTYRAMINE OF NDC 49884-791-65 WHICH SHE RECEIVED INITIALLY
     Route: 048

REACTIONS (5)
  - DRUG INEFFECTIVE [None]
  - DRUG INTOLERANCE [None]
  - EXPIRED DRUG ADMINISTERED [None]
  - MALAISE [None]
  - NAUSEA [None]
